FAERS Safety Report 4563977-X (Version None)
Quarter: 2005Q1

REPORT INFORMATION
  Report Type: 
  Country: None (occurrence: None)
  Receive Date: 20050121
  Receipt Date: 20050110
  Transmission Date: 20050727
  Serious: Yes (Other)
  Sender: FDA-Public Use
  Company Number: 2005011698

PATIENT
  Age: 81 Year
  Sex: Female
  Weight: 55 kg

DRUGS (4)
  1. ATORVASTATIN [Suspect]
     Indication: HEART DISEASE CONGENITAL
     Dosage: 20 MG (20 MG, 1 IN 1 D), ORAL
     Route: 048
     Dates: start: 20041129, end: 20041220
  2. VALPROATE SODIUM [Concomitant]
  3. LEVOTHYROXINE SODIUM [Concomitant]
  4. NIFEDIPINE [Concomitant]

REACTIONS (1)
  - EPILEPSY [None]
